FAERS Safety Report 4447920-X (Version None)
Quarter: 2004Q3

REPORT INFORMATION
  Report Type: 
  Country: None (occurrence: None)
  Receive Date: 20040909
  Receipt Date: 20040909
  Transmission Date: 20050211
  Serious: Yes (Other)
  Sender: FDA-Public Use
  Company Number: None

PATIENT
  Age: 55 Year
  Sex: Female
  Weight: 65.7716 kg

DRUGS (6)
  1. VIOXX [Suspect]
     Indication: ARTHRALGIA
     Dosage: 25 MG   DAILY   ORAL
     Route: 048
     Dates: start: 20000415, end: 20040908
  2. VIOXX [Suspect]
     Indication: HEADACHE
     Dosage: 25 MG   DAILY   ORAL
     Route: 048
     Dates: start: 20000415, end: 20040908
  3. VIOXX [Suspect]
     Indication: JOINT DISLOCATION
     Dosage: 25 MG   DAILY   ORAL
     Route: 048
     Dates: start: 20000415, end: 20040908
  4. VIOXX [Suspect]
     Indication: PAIN IN EXTREMITY
     Dosage: 25 MG   DAILY   ORAL
     Route: 048
     Dates: start: 20000415, end: 20040908
  5. TRAZODONE [Concomitant]
  6. ZYRTEC [Concomitant]

REACTIONS (2)
  - INFLUENZA LIKE ILLNESS [None]
  - PAIN [None]
